FAERS Safety Report 7542356-7 (Version None)
Quarter: 2011Q2

REPORT INFORMATION
  Report Type: 
  Country: None (occurrence: None)
  Receive Date: 20110524
  Receipt Date: 20110207
  Transmission Date: 20111010
  Serious: No
  Sender: FDA-Public Use
  Company Number: 027068

PATIENT
  Sex: Female
  Weight: 74.8 kg

DRUGS (5)
  1. ENTOCORT EC [Concomitant]
  2. ADVAIR DISKUS 100/50 [Concomitant]
  3. CIMZIA [Suspect]
     Indication: CROHN'S DISEASE
     Dosage: 400 MG 1X/4 WEEKS SUBCUTANEOUS
     Route: 058
     Dates: start: 20101210
  4. OMEPRAZOLE [Concomitant]
  5. ALBUTEROL [Concomitant]

REACTIONS (3)
  - COUGH [None]
  - SYRINGE ISSUE [None]
  - HEADACHE [None]
